FAERS Safety Report 15491175 (Version 2)
Quarter: 2018Q4

REPORT INFORMATION
  Report Type: Spontaneous
  Country: IT (occurrence: IT)
  Receive Date: 20181012
  Receipt Date: 20181012
  Transmission Date: 20190205
  Serious: Yes (Hospitalization)
  Sender: FDA-Public Use
  Company Number: IT-SUN PHARMACEUTICAL INDUSTRIES LTD-2018RR-186279

PATIENT
  Age: 65 Year
  Sex: Female
  Weight: 70 kg

DRUGS (12)
  1. CEDRAVIS 35 MG COMPRESSE RIVESTITE CON FILM [Concomitant]
     Indication: PRODUCT USED FOR UNKNOWN INDICATION
     Dosage: 35 MG, UNK
     Route: 048
  2. MYFENAX [Concomitant]
     Active Substance: MYCOPHENOLATE MOFETIL
     Indication: MYASTHENIA GRAVIS
     Dosage: 2 G, UNK
     Route: 048
     Dates: start: 20161018
  3. VENITAL 50 G/L SOLUZIONE PER INFUSIONE [Concomitant]
     Indication: MYASTHENIA GRAVIS
     Dosage: 25 G, UNK
     Route: 042
  4. INSULIN LISPRO [Concomitant]
     Active Substance: INSULIN LISPRO
     Indication: INSULIN-REQUIRING TYPE 2 DIABETES MELLITUS
     Dosage: 10 IU, UNK
     Route: 058
  5. SPIDIFEN 600 MG GRANULATO PER SOLUZIONE ORALE AROMA ALBICOCCA [Suspect]
     Active Substance: IBUPROFEN ARGININE
     Indication: PAIN IN EXTREMITY
     Dosage: 1.2 G, DAILY
     Route: 048
     Dates: start: 20180710
  6. BISOPROLOL FUMARATE. [Concomitant]
     Active Substance: BISOPROLOL FUMARATE
     Indication: PRODUCT USED FOR UNKNOWN INDICATION
     Dosage: 1.25 MG, UNK
     Route: 048
     Dates: start: 20180203
  7. LANSOPRAZOLE. [Concomitant]
     Active Substance: LANSOPRAZOLE
     Indication: PRODUCT USED FOR UNKNOWN INDICATION
     Dosage: 30 MG, UNK
     Route: 048
  8. LASIX [Suspect]
     Active Substance: FUROSEMIDE
     Indication: HYPERTENSION
     Dosage: 1 DF, BID
     Route: 048
  9. DELTACORTENE 25 MG COMPRESSE [Concomitant]
     Active Substance: PREDNISONE
     Indication: PRODUCT USED FOR UNKNOWN INDICATION
     Dosage: 50 MG, UNK
     Route: 048
  10. METFORMIN [Suspect]
     Active Substance: METFORMIN HYDROCHLORIDE
     Indication: INSULIN-REQUIRING TYPE 2 DIABETES MELLITUS
     Dosage: 2.55 G, DAILY
     Route: 048
     Dates: start: 20180706
  11. ZOPRAZIDE 30 MG/12,5 MG COMPRESSE RIVESTITE CON FILM [Suspect]
     Active Substance: HYDROCHLOROTHIAZIDE\ZOFENOPRIL CALCIUM
     Indication: HYPERTENSION
     Dosage: 0.5 DF, DAILY
     Route: 048
     Dates: start: 20180703
  12. DIBASE 25.000 U.I./2,5 ML SOLUZIONE ORALE [Concomitant]
     Indication: PRODUCT USED FOR UNKNOWN INDICATION
     Route: 065

REACTIONS (2)
  - Renal tubular disorder [Unknown]
  - Acute kidney injury [Unknown]

NARRATIVE: CASE EVENT DATE: 20180723
